FAERS Safety Report 16595900 (Version 1)
Quarter: 2019Q3

REPORT INFORMATION
  Report Type: Spontaneous
  Country: US (occurrence: US)
  Receive Date: 20190719
  Receipt Date: 20190719
  Transmission Date: 20191004
  Serious: Yes (Death, Hospitalization, Other)
  Sender: FDA-Public Use
  Company Number: US-ZYDUS-038721

PATIENT
  Age: 55 Year
  Sex: Male

DRUGS (2)
  1. ADALIMUMAB [Suspect]
     Active Substance: ADALIMUMAB
     Indication: IMMUNOMODULATORY THERAPY
     Route: 065
  2. AZATHIOPRINE. [Suspect]
     Active Substance: AZATHIOPRINE
     Indication: IMMUNOMODULATORY THERAPY
     Route: 065

REACTIONS (11)
  - Hepatosplenomegaly [Fatal]
  - Epistaxis [Unknown]
  - Rash erythematous [Unknown]
  - Pyrexia [Unknown]
  - Lethargy [Unknown]
  - Pancytopenia [Unknown]
  - Cytopenia [Unknown]
  - Haemophagocytic lymphohistiocytosis [Fatal]
  - Rash pruritic [Unknown]
  - Hyperferritinaemia [Unknown]
  - Hepatosplenic T-cell lymphoma [Fatal]
